FAERS Safety Report 8666748 (Version 6)
Quarter: 2013Q4

REPORT INFORMATION
  Report Type: Spontaneous
  Country: US (occurrence: US)
  Receive Date: 20120716
  Receipt Date: 20131114
  Transmission Date: 20140711
  Serious: Yes (Hospitalization, Disabling, Other)
  Sender: FDA-Public Use
  Company Number: US-009507513-2012SP005879

PATIENT
  Sex: Female
  Weight: 49.9 kg

DRUGS (2)
  1. NUVARING [Suspect]
     Indication: CONTRACEPTION
     Dates: start: 2009, end: 201002
  2. [COMPOSITION UNSPECIFIED] [Suspect]
     Indication: WEIGHT DECREASED

REACTIONS (14)
  - Convulsion [Unknown]
  - Cerebrovascular accident [Not Recovered/Not Resolved]
  - Carotid artery stenosis [Unknown]
  - Mental disorder [Unknown]
  - Emotional disorder [Unknown]
  - Hypokalaemia [Unknown]
  - Anaemia [Not Recovered/Not Resolved]
  - Thrombocytosis [Unknown]
  - Carotid artery thrombosis [Unknown]
  - Sleep disorder [Unknown]
  - Cognitive disorder [Unknown]
  - Encephalomalacia [Unknown]
  - Paraesthesia [Unknown]
  - Carotid artery thrombosis [Unknown]
